FAERS Safety Report 7458336-6 (Version None)
Quarter: 2011Q2

REPORT INFORMATION
  Report Type: 
  Country: None (occurrence: None)
  Receive Date: 20110426
  Receipt Date: 20110414
  Transmission Date: 20111010
  Serious: Yes (Other)
  Sender: FDA-Public Use
  Company Number: GER/UKI/11/0017720

PATIENT
  Age: 72 Year
  Sex: Female
  Weight: 87 kg

DRUGS (1)
  1. AMLODIPINE [Suspect]
     Indication: HYPERTENSION
     Dosage: 10 MG, ORAL
     Route: 048
     Dates: start: 20030101, end: 20110101

REACTIONS (2)
  - HAEMORRHAGE [None]
  - GINGIVAL HYPERPLASIA [None]
